FAERS Safety Report 7675358-0 (Version None)
Quarter: 2011Q3

REPORT INFORMATION
  Report Type: 
  Country: None (occurrence: None)
  Receive Date: 20110810
  Receipt Date: 20110804
  Transmission Date: 20111222
  Serious: Yes (Other)
  Sender: FDA-Public Use
  Company Number: IT-PFIZER INC-2011182495

PATIENT
  Age: 77 Year
  Sex: Male

DRUGS (10)
  1. CORDARONE [Suspect]
     Indication: VENTRICULAR TACHYCARDIA
     Dosage: 200 MG, 1X/DAY
     Route: 048
     Dates: start: 20110601, end: 20110721
  2. LASIX [Concomitant]
     Dosage: 25 MG/DAY P.O.
     Route: 048
  3. ATENOLOL [Concomitant]
     Dosage: 100 MG/DAY P.O.
  4. CASODEX [Concomitant]
     Indication: PROSTATE CANCER
     Dosage: 50 MG/DAY P.O.
  5. ASPIRIN [Concomitant]
     Indication: THROMBOSIS PROPHYLAXIS
  6. ENALAPRIL MALEATE [Concomitant]
     Dosage: 40 MG/DAY P.O.
  7. AMLODIPINE BESILATE [Concomitant]
     Indication: HYPERTENSION
  8. DECAPEPTYL [Concomitant]
  9. CLONIDINE HYDROCHLORIDE [Concomitant]
     Indication: MYOCARDIAL ISCHAEMIA
  10. OMEPRAZOLE [Concomitant]
     Indication: PROPHYLAXIS AGAINST GASTROINTESTINAL ULCER

REACTIONS (3)
  - ELECTROCARDIOGRAM QT PROLONGED [None]
  - SYNCOPE [None]
  - BRADYCARDIA [None]
